FAERS Safety Report 18142605 (Version 1)
Quarter: 2020Q3

REPORT INFORMATION
  Report Type: Spontaneous
  Country: ES (occurrence: ES)
  Receive Date: 20200812
  Receipt Date: 20200812
  Transmission Date: 20201103
  Serious: Yes (Life-Threatening, Hospitalization)
  Sender: FDA-Public Use
  Company Number: NVSC2020ES222737

PATIENT
  Age: 72 Year
  Sex: Male
  Weight: 102 kg

DRUGS (1)
  1. ADALIMUMAB [Suspect]
     Active Substance: ADALIMUMAB
     Indication: PSORIASIS
     Dosage: 40 MG, Q2W (40 MG EN SEMANAS ALTERNAS)
     Route: 058
     Dates: start: 20190726, end: 20200703

REACTIONS (1)
  - Biliary sepsis [Recovered/Resolved]

NARRATIVE: CASE EVENT DATE: 20200703
